FAERS Safety Report 5393396-8 (Version None)
Quarter: 2007Q3

REPORT INFORMATION
  Report Type: 
  Country: None (occurrence: None)
  Receive Date: 20070717
  Receipt Date: 20070717
  Transmission Date: 20080115
  Serious: Yes (Other)
  Sender: FDA-Public Use
  Company Number: None

PATIENT
  Age: 31 Year
  Sex: Female

DRUGS (2)
  1. ORTHO EVRA [Suspect]
  2. MAXALT [Suspect]
     Dosage: PRN

REACTIONS (8)
  - AMNESIA [None]
  - DIZZINESS [None]
  - DYSPHEMIA [None]
  - FATIGUE [None]
  - FLAT AFFECT [None]
  - HEADACHE [None]
  - MIGRAINE [None]
  - REVERSIBLE ISCHAEMIC NEUROLOGICAL DEFICIT [None]
